FAERS Safety Report 7750650-X (Version None)
Quarter: 2011Q3

REPORT INFORMATION
  Report Type: 
  Country: None (occurrence: None)
  Receive Date: 20110914
  Receipt Date: 20110802
  Transmission Date: 20111222
  Serious: Yes (Hospitalization)
  Sender: FDA-Public Use
  Company Number: JP-GLAXOSMITHKLINE-B0737344A

PATIENT
  Sex: Female

DRUGS (4)
  1. TOPIRAMATE [Concomitant]
     Indication: EPILEPSY
     Route: 048
     Dates: start: 20110525
  2. ZONISAMIDE [Concomitant]
     Indication: EPILEPSY
     Route: 048
     Dates: start: 20050101
  3. LAMICTAL [Suspect]
     Indication: EPILEPSY
     Dosage: 50MG PER DAY
     Route: 048
     Dates: start: 20110712, end: 20110728
  4. PHENOBARBITAL TAB [Concomitant]
     Indication: EPILEPSY
     Dosage: 110MG PER DAY
     Route: 048
     Dates: start: 20050101, end: 20110805

REACTIONS (5)
  - PYREXIA [None]
  - LIP SWELLING [None]
  - RASH [None]
  - ENANTHEMA [None]
  - OEDEMA PERIPHERAL [None]
